FAERS Safety Report 5709450-4 (Version None)
Quarter: 2008Q2

REPORT INFORMATION
  Report Type: 
  Country: None (occurrence: None)
  Receive Date: 20080418
  Receipt Date: 20080408
  Transmission Date: 20081010
  Serious: Yes (Other)
  Sender: FDA-Public Use
  Company Number: IE-JNJFOC-20080404707

PATIENT
  Age: 47 Year
  Sex: Female

DRUGS (2)
  1. TRAMADOL HCL [Suspect]
     Indication: MUSCULOSKELETAL PAIN
     Route: 048
  2. FENOFIBRATE (MICRONIZED) [Concomitant]
     Route: 065

REACTIONS (7)
  - DIZZINESS [None]
  - FEELING ABNORMAL [None]
  - HEADACHE [None]
  - HYPERHIDROSIS [None]
  - HYPOKINESIA [None]
  - NAUSEA [None]
  - PHOTOPSIA [None]
